FAERS Safety Report 4993326-4 (Version None)
Quarter: 2006Q2

REPORT INFORMATION
  Report Type: 
  Country: None (occurrence: None)
  Receive Date: 20060505
  Receipt Date: 20060425
  Transmission Date: 20061013
  Serious: Yes (Disabling)
  Sender: FDA-Public Use
  Company Number: 2006AP01988

PATIENT
  Age: 66 Year
  Sex: Female

DRUGS (9)
  1. ARIMIDEX [Suspect]
     Indication: BREAST CANCER
     Route: 048
     Dates: start: 20010101, end: 20051130
  2. PREDNISOLONE [Concomitant]
     Route: 048
  3. PREDNISOLONE [Concomitant]
     Dates: start: 20060306, end: 20060316
  4. PREDNISOLONE [Concomitant]
     Dates: start: 20060317, end: 20060409
  5. PREDNISOLONE [Concomitant]
     Dates: start: 20060410
  6. METOLATE [Concomitant]
     Route: 048
  7. GASTER D [Concomitant]
     Route: 048
  8. AZULFIDINE EN-TABS [Concomitant]
     Route: 048
  9. FOLIAMIN [Concomitant]
     Route: 048

REACTIONS (2)
  - BLOOD GLUCOSE INCREASED [None]
  - RHEUMATOID ARTHRITIS [None]
